FAERS Safety Report 10047010 (Version 2)
Quarter: 2014Q1

REPORT INFORMATION
  Report Type: Spontaneous
  Country: JP (occurrence: JP)
  Receive Date: 20140331
  Receipt Date: 20140331
  Transmission Date: 20141002
  Serious: Yes (Other)
  Sender: FDA-Public Use
  Company Number: JP-ROCHE-1350743

PATIENT
  Age: 5 Year
  Sex: Male
  Weight: 20 kg

DRUGS (1)
  1. TAMIFLU [Suspect]
     Indication: INFLUENZA B VIRUS TEST POSITIVE
     Dosage: DOSAGE IS UNCERTAIN.
     Route: 048
     Dates: start: 20140210

REACTIONS (1)
  - Abnormal behaviour [Recovered/Resolved]
